FAERS Safety Report 11693054 (Version 1)
Quarter: 2015Q4

REPORT INFORMATION
  Report Type: Spontaneous
  Country: US (occurrence: None)
  Receive Date: 20151102
  Receipt Date: 20151102
  Transmission Date: 20160304
  Serious: Yes (Other)
  Sender: FDA-Public Use
  Company Number: None

PATIENT
  Age: 19 Year
  Sex: Female
  Weight: 54.43 kg

DRUGS (2)
  1. LIDOCAINE. [Suspect]
     Active Substance: LIDOCAINE
     Indication: WISDOM TEETH REMOVAL
     Dosage: PRIOR TO EXTRACTION ORAL INJECTION 4 WISDOM
     Route: 048
  2. DAILY VITAMIN [Concomitant]
     Active Substance: VITAMINS

REACTIONS (5)
  - Confusional state [None]
  - Blood pressure increased [None]
  - Diplopia [None]
  - Euphoric mood [None]
  - Dizziness [None]

NARRATIVE: CASE EVENT DATE: 20151008
